FAERS Safety Report 6832021-3 (Version None)
Quarter: 2010Q3

REPORT INFORMATION
  Report Type: 
  Country: None (occurrence: None)
  Receive Date: 20100712
  Receipt Date: 20100701
  Transmission Date: 20110219
  Serious: Yes (Hospitalization)
  Sender: FDA-Public Use
  Company Number: NO-ROCHE-712948

PATIENT
  Sex: Female

DRUGS (4)
  1. TAMIFLU [Suspect]
     Route: 048
     Dates: start: 20091104, end: 20091106
  2. PANDEMRIX [Suspect]
     Route: 051
     Dates: start: 20091106
  3. CENTYL [Concomitant]
     Route: 048
  4. SIMVASTATIN [Concomitant]
     Route: 048

REACTIONS (1)
  - ACUTE MYOCARDIAL INFARCTION [None]
